FAERS Safety Report 12162233 (Version 1)
Quarter: 2016Q1

REPORT INFORMATION
  Report Type: Spontaneous
  Country: US (occurrence: None)
  Receive Date: 20160307
  Receipt Date: 20160307
  Transmission Date: 20160526
  Serious: Yes (Life-Threatening, Other)
  Sender: FDA-Public Use
  Company Number: None

PATIENT
  Age: 45 Year
  Sex: Male
  Weight: 77.11 kg

DRUGS (6)
  1. GABAPENTIN. [Concomitant]
     Active Substance: GABAPENTIN
  2. PROBIOTIC [Concomitant]
     Active Substance: PROBIOTICS NOS
  3. CLINDAMYCIN [Suspect]
     Active Substance: CLINDAMYCIN\CLINDAMYCIN PHOSPHATE
     Indication: TOOTH INFECTION
     Dosage: 3 THREE TIMES DAILY
     Route: 048
     Dates: start: 20160122, end: 20160201
  4. CYCLOBENZAPRINS [Concomitant]
  5. METRONIDAZOL [Concomitant]
     Active Substance: METRONIDAZOLE
  6. CENTRUM SILVER VITAMANS [Concomitant]

REACTIONS (2)
  - Gastrointestinal disorder [None]
  - Clostridium difficile infection [None]

NARRATIVE: CASE EVENT DATE: 20160122
